FAERS Safety Report 21822832 (Version 1)
Quarter: 2023Q1

REPORT INFORMATION
  Report Type: Spontaneous
  Country: US (occurrence: US)
  Receive Date: 20230105
  Receipt Date: 20230105
  Transmission Date: 20230417
  Serious: No
  Sender: FDA-Public Use
  Company Number: US-AMNEAL PHARMACEUTICALS-2022-AMRX-03028

PATIENT
  Age: 21 Year
  Sex: Female
  Weight: 45.351 kg

DRUGS (2)
  1. ELURYNG [Suspect]
     Active Substance: ETHINYL ESTRADIOL\ETONOGESTREL
     Indication: Contraception
     Dosage: RING IN FOR 21 DAYS, RING OUT FOR 7 DAYS THEN REPLACE
     Route: 067
     Dates: start: 20220614
  2. AMNESTEEM [Concomitant]
     Active Substance: ISOTRETINOIN
     Indication: Product used for unknown indication
     Dosage: UNK
     Route: 065
     Dates: start: 202204

REACTIONS (4)
  - Vulvovaginal pain [Recovering/Resolving]
  - Vaginal haemorrhage [Recovered/Resolved]
  - Device breakage [Unknown]
  - Product substitution issue [None]

NARRATIVE: CASE EVENT DATE: 20220909
